FAERS Safety Report 17803356 (Version 1)
Quarter: 2020Q2

REPORT INFORMATION
  Report Type: Spontaneous
  Country: SE (occurrence: SE)
  Receive Date: 20200519
  Receipt Date: 20200519
  Transmission Date: 20200714
  Serious: Yes (Life-Threatening)
  Sender: FDA-Public Use
  Company Number: SE-TEVA-2020-SE-1235993

PATIENT
  Age: 66 Year
  Sex: Male

DRUGS (8)
  1. OZEMPIC [Concomitant]
     Active Substance: SEMAGLUTIDE
     Dosage: 1 DOSE PER WEAK
     Dates: start: 20190627, end: 20200503
  2. METFORMIN ACTAVIS 850 MG FILMDRAGERAD TABLETT [Suspect]
     Active Substance: METFORMIN HYDROCHLORIDE
     Indication: TYPE 2 DIABETES MELLITUS
     Dosage: 2550 MG
     Route: 048
     Dates: start: 20170403, end: 20200503
  3. BEHEPAN [Concomitant]
     Dosage: 1 MG
     Dates: start: 20170404, end: 20200503
  4. LOSARTAN AND HYDROCHLOROTHIAZIDE [Concomitant]
     Active Substance: HYDROCHLOROTHIAZIDE\LOSARTAN POTASSIUM
     Dates: start: 20191015, end: 20200503
  5. ATORVASTATIN TEVA [Concomitant]
     Active Substance: ATORVASTATIN
     Dosage: 20 MG
     Dates: start: 20181204, end: 20200503
  6. JARDIANCE [Concomitant]
     Active Substance: EMPAGLIFLOZIN
     Dosage: 10 MG
     Dates: start: 20181204, end: 20200503
  7. TRILAFON DEKANOAT [Concomitant]
     Active Substance: PERPHENAZINE DECANOATE
     Dosage: 0.4 ML
     Dates: start: 20190215
  8. DUROFERON [Concomitant]
     Active Substance: FERROUS SULFATE
     Dosage: 100 MG
     Dates: start: 20170403, end: 20200503

REACTIONS (2)
  - Cardiovascular insufficiency [Not Recovered/Not Resolved]
  - Lactic acidosis [Not Recovered/Not Resolved]

NARRATIVE: CASE EVENT DATE: 20200503
